FAERS Safety Report 16131821 (Version 1)
Quarter: 2019Q1

REPORT INFORMATION
  Report Type: Spontaneous
  Country: FR (occurrence: FR)
  Receive Date: 20190329
  Receipt Date: 20190329
  Transmission Date: 20190418
  Serious: Yes (Hospitalization)
  Sender: FDA-Public Use
  Company Number: FR-AUROBINDO-AUR-APL-2019-016362

PATIENT

DRUGS (2)
  1. REPAGLINIDE. [Concomitant]
     Active Substance: REPAGLINIDE
     Indication: PRODUCT USED FOR UNKNOWN INDICATION
     Dosage: UNK
     Route: 065
  2. FENOFIBRATE. [Suspect]
     Active Substance: FENOFIBRATE
     Indication: DYSLIPIDAEMIA
     Dosage: 145 MILLIGRAM
     Route: 048
     Dates: start: 201902, end: 20190210

REACTIONS (5)
  - Incorrect dose administered [Recovered/Resolved]
  - Medication error [Recovered/Resolved]
  - Overdose [Recovered/Resolved]
  - Gamma-glutamyltransferase increased [Recovering/Resolving]
  - Transaminases increased [Recovering/Resolving]

NARRATIVE: CASE EVENT DATE: 20190201
